FAERS Safety Report 9547446 (Version 3)
Quarter: 2013Q4

REPORT INFORMATION
  Report Type: Spontaneous
  Country: US (occurrence: None)
  Receive Date: 20130920
  Receipt Date: 20131016
  Transmission Date: 20140711
  Serious: Yes (Hospitalization)
  Sender: FDA-Public Use
  Company Number: 2013SGN00540

PATIENT
  Age: 30 Year
  Sex: Female

DRUGS (5)
  1. BRENTUXIMAB VEDOTIN [Suspect]
     Indication: HODGKIN^S DISEASE
     Dosage: QCYCLE
     Route: 042
     Dates: start: 20130606
  2. IFOSFAMIDE (IFOSFAMIDE) [Suspect]
     Indication: HODGKIN^S DISEASE
     Dosage: 5000 MG/M2, QCYCLE, INTRAVENOUS
     Route: 042
     Dates: end: 20130808
  3. CARBOPLATIN (CARBOPLATIN) [Suspect]
     Indication: HODGKIN^S DISEASE
     Route: 042
     Dates: end: 20130808
  4. ETOPOSIDE (ETOPOSIDE PHOSPHATE) [Suspect]
     Indication: HODGKIN^S DISEASE
     Dosage: 200 MG/M2, QCYCLE, INTRAVENOUS
     Dates: end: 20130808
  5. MESNA (MESNA) [Suspect]
     Indication: HODGKIN^S DISEASE
     Route: 042
     Dates: end: 20130808

REACTIONS (1)
  - Febrile neutropenia [None]
